FAERS Safety Report 6349000-5 (Version None)
Quarter: 2009Q3

REPORT INFORMATION
  Report Type: 
  Country: None (occurrence: None)
  Receive Date: 20090911
  Receipt Date: 20090908
  Transmission Date: 20100115
  Serious: Yes (Death)
  Sender: FDA-Public Use
  Company Number: US-JNJFOC-20090301287

PATIENT
  Sex: Female
  Weight: 84 kg

DRUGS (8)
  1. FENTANYL TRANSDERMAL SYSTEM [Suspect]
     Indication: PAIN
     Route: 062
  2. OXYCODONE [Suspect]
     Indication: DRUG USE FOR UNKNOWN INDICATION
     Route: 048
  3. DARVOCET [Suspect]
     Indication: MYALGIA
     Route: 048
  4. TRAZODONE [Concomitant]
  5. DIPHENHYDRAMINE HCL [Concomitant]
  6. DOXYLAMINE SUCCINATE [Concomitant]
  7. MEPROBAMATE [Concomitant]
  8. DEXTROMETHORPHAN HYDROBROMIDE [Concomitant]

REACTIONS (3)
  - DRUG ABUSE [None]
  - MYOCARDITIS [None]
  - PNEUMONIA [None]
